FAERS Safety Report 6103014-9 (Version None)
Quarter: 2009Q1

REPORT INFORMATION
  Report Type: 
  Country: None (occurrence: None)
  Receive Date: 20090305
  Receipt Date: 20090301
  Transmission Date: 20090719
  Serious: Yes (Death)
  Sender: FDA-Public Use
  Company Number: PHHY2009CA07425

PATIENT
  Sex: Male

DRUGS (3)
  1. CO-DIOVAN T32564+ [Suspect]
     Dosage: 160/12.5 MG
     Route: 048
     Dates: start: 20081216, end: 20090208
  2. LIPITOR [Concomitant]
     Dosage: 20 MG
  3. ASPIRIN [Concomitant]
     Dosage: 80 MG, QD
     Route: 048

REACTIONS (2)
  - CARDIAC ARREST [None]
  - MYOCARDIAL INFARCTION [None]
